FAERS Safety Report 8517937-4 (Version None)
Quarter: 2012Q3

REPORT INFORMATION
  Report Type: 
  Country: None (occurrence: None)
  Receive Date: 20120718
  Receipt Date: 20110725
  Transmission Date: 20120928
  Serious: No
  Sender: FDA-Public Use
  Company Number: US-BRISTOL-MYERS SQUIBB COMPANY-15921208

PATIENT
  Age: 80 Year
  Sex: Male
  Weight: 75 kg

DRUGS (13)
  1. MICARDIS [Concomitant]
  2. FISH OIL [Concomitant]
  3. CALCIUM [Concomitant]
  4. NORVASC [Concomitant]
  5. SIMVASTATIN [Concomitant]
  6. COUMADIN [Suspect]
     Indication: ATRIAL FIBRILLATION
     Dosage: FIRST PLACE ON COUMADIN 2.5 MG DAILY BUT REDUCED TO COUMADIN 1 MG DAILY
  7. ASCORBIC ACID [Concomitant]
  8. TYLENOL [Concomitant]
  9. OMEPRAZOLE [Concomitant]
  10. COREG [Concomitant]
  11. ASPIRIN [Concomitant]
  12. GLUCOSAMINE [Concomitant]
     Dosage: 1500 IN THE MORNING AND 1200 MG  IN THE EVENING
  13. ADVAIR DISKUS 100/50 [Concomitant]
     Dosage: 1 DF=250/520 UNITS NOS 2 PUFF PER DAY

REACTIONS (2)
  - EPISTAXIS [None]
  - INFLAMMATION OF WOUND [None]
